FAERS Safety Report 18648387 (Version 1)
Quarter: 2020Q4

REPORT INFORMATION
  Report Type: Spontaneous
  Country: US (occurrence: US)
  Receive Date: 20201221
  Receipt Date: 20201221
  Transmission Date: 20210114
  Serious: No
  Sender: FDA-Public Use
  Company Number: None

PATIENT
  Sex: Female

DRUGS (1)
  1. ESTRADIOL. [Suspect]
     Active Substance: ESTRADIOL
     Indication: INFERTILITY FEMALE
     Route: 062
     Dates: start: 20201112, end: 202012

REACTIONS (2)
  - Application site pruritus [None]
  - Hypersensitivity [None]
